FAERS Safety Report 5673713-1 (Version None)
Quarter: 2008Q2

REPORT INFORMATION
  Report Type: 
  Country: None (occurrence: None)
  Receive Date: 20080225
  Receipt Date: 20070815
  Transmission Date: 20081010
  Serious: Yes (Hospitalization)
  Sender: FDA-Public Use
  Company Number: WAES 0708USA04260

PATIENT
  Age: 67 Year
  Sex: Male

DRUGS (4)
  1. ZOCOR [Suspect]
     Dosage: 40 MG/DAILY/PO
     Route: 048
  2. COUMADIN [Concomitant]
  3. VIOXX [Concomitant]
  4. VERAPAMIL [Concomitant]

REACTIONS (1)
  - THROMBOCYTOPENIA [None]
